FAERS Safety Report 9732262 (Version 1)
Quarter: 2013Q4

REPORT INFORMATION
  Report Type: Spontaneous
  Country: US (occurrence: None)
  Receive Date: 20131203
  Receipt Date: 20131203
  Transmission Date: 20140711
  Serious: Yes (Death)
  Sender: FDA-Public Use
  Company Number: US-ALKEM-000323

PATIENT
  Age: 53 Year
  Sex: Male

DRUGS (4)
  1. AMLODIPINE (AMLODIPINE) [Suspect]
     Dosage: ORAL
     Route: 048
  2. MODAFINIL [Suspect]
     Dosage: ORAL
     Route: 048
  3. ACETAMINOPHEN\PROPOXYPHENE [Suspect]
     Dosage: ORAL
     Route: 048
  4. LOVASTATIN (LOVASTATIN) [Suspect]
     Dosage: ORAL
     Route: 048

REACTIONS (4)
  - Completed suicide [None]
  - Exposure via ingestion [None]
  - Cardiac arrest [None]
  - Respiratory arrest [None]
